FAERS Safety Report 4443369-4 (Version None)
Quarter: 2004Q3

REPORT INFORMATION
  Report Type: 
  Country: None (occurrence: None)
  Receive Date: 20040903
  Receipt Date: 20040903
  Transmission Date: 20050211
  Serious: Yes (Life-Threatening, Hospitalization, Other)
  Sender: FDA-Public Use
  Company Number: None

PATIENT
  Age: 46 Year
  Sex: Female
  Weight: 113.3993 kg

DRUGS (5)
  1. TISSUE [Suspect]
  2. DILTIAZEM HCL [Concomitant]
  3. PROZAC [Concomitant]
  4. FUROSEMIDE [Concomitant]
  5. POTASSIUM [Concomitant]

REACTIONS (3)
  - ABDOMINAL PAIN [None]
  - BODY TEMPERATURE INCREASED [None]
  - POST PROCEDURAL COMPLICATION [None]
